FAERS Safety Report 20549592 (Version 2)
Quarter: 2022Q1

REPORT INFORMATION
  Report Type: Report from Study
  Country: IE (occurrence: IE)
  Receive Date: 20220304
  Receipt Date: 20220309
  Transmission Date: 20220423
  Serious: Yes (Hospitalization)
  Sender: FDA-Public Use
  Company Number: IE-AstraZeneca-2022A090317

PATIENT
  Age: 0 Year
  Sex: Male

DRUGS (2)
  1. SYNAGIS [Suspect]
     Active Substance: PALIVIZUMAB
     Indication: Premature baby
     Dosage: AFTER 28 DAYS?MEDICATION ERROR
     Route: 030
     Dates: start: 20220301
  2. SYNAGIS [Suspect]
     Active Substance: PALIVIZUMAB
     Dosage: AFTER 28 DAYS?MEDICATION ERROR
     Route: 030
     Dates: start: 20220113

REACTIONS (2)
  - Dyspnoea [Recovered/Resolved]
  - Inappropriate schedule of product administration [Unknown]

NARRATIVE: CASE EVENT DATE: 20220220
